FAERS Safety Report 6436094-1 (Version None)
Quarter: 2009Q4

REPORT INFORMATION
  Report Type: 
  Country: None (occurrence: None)
  Receive Date: 20091111
  Receipt Date: 20091030
  Transmission Date: 20100525
  Serious: Yes (Other)
  Sender: FDA-Public Use
  Company Number: JP-PFIZER INC-2009294462

PATIENT
  Age: 65 Year
  Sex: Male

DRUGS (6)
  1. CAMPTOSAR [Suspect]
     Indication: LARGE INTESTINE CARCINOMA
     Dosage: 200 MG, UNK
     Route: 041
     Dates: start: 20050905, end: 20090323
  2. CALCIUM LEVOFOLINATE [Concomitant]
     Indication: LARGE INTESTINE CARCINOMA
     Dosage: 270 MG, UNK
     Route: 041
     Dates: start: 20050905, end: 20090323
  3. FLUOROURACIL [Concomitant]
     Indication: LARGE INTESTINE CARCINOMA
     Dosage: 540 MG, UNK
     Route: 040
     Dates: start: 20050905, end: 20090323
  4. FLUOROURACIL [Concomitant]
     Dosage: 3500 MG, D1-2
     Route: 041
     Dates: start: 20050905, end: 20090323
  5. AVASTIN [Concomitant]
     Indication: LARGE INTESTINE CARCINOMA
     Dosage: UNK
     Route: 041
  6. ERBITUX [Concomitant]
     Indication: LARGE INTESTINE CARCINOMA
     Dosage: UNK
     Route: 041

REACTIONS (1)
  - LIVER DISORDER [None]
